FAERS Safety Report 4330693-9 (Version None)
Quarter: 2004Q2

REPORT INFORMATION
  Report Type: 
  Country: None (occurrence: None)
  Receive Date: 20040401
  Receipt Date: 20040401
  Transmission Date: 20050107
  Serious: No
  Sender: FDA-Public Use
  Company Number: None

PATIENT
  Age: 57 Year
  Sex: Male
  Weight: 108.9 kg

DRUGS (10)
  1. INSULIN, GLARGINE, HUMAN 100 UNT [Suspect]
     Indication: DIABETES MELLITUS
     Dosage: 60 UNITS, AT BEDTI
     Dates: start: 20031027, end: 20040109
  2. INSULIN LISPRO HUMAN [Concomitant]
  3. PAROXETINE HCL [Concomitant]
  4. HYDROCHLOROTHIAZIDE [Concomitant]
  5. HUMULIN N [Concomitant]
  6. FOSINOPRIL NA [Concomitant]
  7. ATENOLOL [Concomitant]
  8. GLYBURIDE [Concomitant]
  9. PSEUDOEPHEDRINE HCL [Concomitant]
  10. FLUTICASONE PROP NASAL INH [Concomitant]

REACTIONS (1)
  - ANAPHYLACTIC REACTION [None]
